FAERS Safety Report 17847666 (Version 3)
Quarter: 2021Q2

REPORT INFORMATION
  Report Type: Report from Study
  Country: BE (occurrence: BE)
  Receive Date: 20200601
  Receipt Date: 20210512
  Transmission Date: 20210717
  Serious: Yes (Death, Hospitalization, Other)
  Sender: FDA-Public Use
  Company Number: BE-EXELIXIS-XL18420030035

PATIENT
  Age: 47 Year
  Sex: Male
  Weight: 72 kg

DRUGS (5)
  1. INLYTE [Concomitant]
     Indication: RENAL CELL CARCINOMA
     Dosage: 5 MG, BID
     Route: 048
     Dates: start: 20200611
  2. CABOZANTINIB [Suspect]
     Active Substance: CABOZANTINIB
     Dosage: 40 MG, QD
     Route: 048
     Dates: start: 20200521, end: 20200604
  3. MEDROL [Concomitant]
     Active Substance: METHYLPREDNISOLONE
     Indication: LYMPHANGIOSIS CARCINOMATOSA
     Dosage: 32MG, DAILY
     Route: 048
     Dates: start: 20200423
  4. OXYCODON [Concomitant]
     Active Substance: OXYCODONE
     Indication: PAIN
     Dosage: 10 MG, BID
     Route: 048
     Dates: start: 20200423
  5. CABOZANTINIB [Suspect]
     Active Substance: CABOZANTINIB
     Indication: METASTATIC RENAL CELL CARCINOMA
     Dosage: 60 MG, QD
     Route: 048
     Dates: start: 20200428

REACTIONS (7)
  - Cerebrovascular accident [Not Recovered/Not Resolved]
  - Headache [Recovered/Resolved]
  - Oral pain [Recovered/Resolved]
  - Dysphonia [Not Recovered/Not Resolved]
  - Sudden death [Fatal]
  - Pyrexia [Recovered/Resolved]
  - Rash maculo-papular [Recovered/Resolved]

NARRATIVE: CASE EVENT DATE: 20200508
